FAERS Safety Report 9125285 (Version 2)
Quarter: 2013Q2

REPORT INFORMATION
  Report Type: Report from Study
  Country: US (occurrence: US)
  Receive Date: 20130227
  Receipt Date: 20130628
  Transmission Date: 20140414
  Serious: Yes (Hospitalization, Other)
  Sender: FDA-Public Use
  Company Number: US-ABBOTT-13P-163-1052340-00

PATIENT
  Age: 40 Year
  Sex: Male
  Weight: 83.08 kg

DRUGS (15)
  1. HUMIRA [Suspect]
     Indication: PSORIATIC ARTHROPATHY
     Dosage: Q WEEK AND EVERY OTHER WEEK
     Dates: start: 20050913
  2. RADIATION THERAPY [Suspect]
     Indication: NECK MASS
  3. OXYCONTIN [Concomitant]
     Indication: PAIN
  4. OXYCONTIN [Concomitant]
     Indication: PSORIATIC ARTHROPATHY
  5. OXYCONTIN [Concomitant]
     Indication: FIBROMYALGIA
  6. OXYCODONE [Concomitant]
     Indication: PAIN
  7. VITAMIN D NOS [Concomitant]
     Indication: VITAMIN D DECREASED
  8. KETOCONAZOLE [Concomitant]
     Indication: PSORIASIS
  9. CALCIUM CARBONATE [Concomitant]
     Indication: BLOOD CALCIUM DECREASED
  10. MULTIVITAMINS [Concomitant]
     Indication: VITAMIN SUPPLEMENTATION
  11. SILYMARIN MILK THISTLE [Concomitant]
     Indication: LIVER DISORDER
  12. SILYMARIN MILK THISTLE [Concomitant]
     Indication: PROPHYLAXIS
  13. ZOMIG [Concomitant]
     Indication: HEADACHE
  14. HUMATROPE [Concomitant]
     Indication: FIBROMYALGIA
     Dosage: INTERMITTENT, UP TO 0.4 MG DAILY
     Route: 050
     Dates: start: 2012
  15. METHOTREXATE [Concomitant]
     Indication: PSORIATIC ARTHROPATHY
     Dates: start: 201106

REACTIONS (7)
  - Desmoid tumour [Unknown]
  - Pulmonary embolism [Unknown]
  - Radiation injury [Unknown]
  - Blood testosterone decreased [Unknown]
  - Fatigue [Unknown]
  - Headache [Unknown]
  - Burns third degree [Unknown]
